FAERS Safety Report 5279961-7 (Version None)
Quarter: 2007Q1

REPORT INFORMATION
  Report Type: 
  Country: None (occurrence: None)
  Receive Date: 20070327
  Receipt Date: 20070327
  Transmission Date: 20070707
  Serious: Yes (Other)
  Sender: FDA-Public Use
  Company Number: None

PATIENT
  Age: 68 Year
  Sex: Male
  Weight: 77.1115 kg

DRUGS (1)
  1. ACTOS [Suspect]
     Indication: DIABETES MELLITUS
     Dosage: PER DOCTORS ORDERS 1 PER DAY
     Dates: start: 20041101, end: 20061101

REACTIONS (2)
  - JAW DISORDER [None]
  - TOOTH DISORDER [None]
